FAERS Safety Report 17325595 (Version 1)
Quarter: 2020Q1

REPORT INFORMATION
  Report Type: Spontaneous
  Country: LU (occurrence: LU)
  Receive Date: 20200127
  Receipt Date: 20200127
  Transmission Date: 20200409
  Serious: Yes (Other)
  Sender: FDA-Public Use
  Company Number: NVSC2020LU018511

PATIENT
  Age: 11 Year
  Sex: Male
  Weight: 86 kg

DRUGS (1)
  1. BETAMETHASONE. [Suspect]
     Active Substance: BETAMETHASONE
     Indication: DYSHIDROTIC ECZEMA
     Dosage: UNK, BID DURING A WEEK
     Route: 061

REACTIONS (1)
  - Adrenal insufficiency [Unknown]
